FAERS Safety Report 8118657-0 (Version None)
Quarter: 2012Q1

REPORT INFORMATION
  Report Type: 
  Country: None (occurrence: None)
  Receive Date: 20120202
  Receipt Date: 20120118
  Transmission Date: 20120608
  Serious: Yes (Hospitalization)
  Sender: FDA-Public Use
  Company Number: 1000026561

PATIENT
  Age: 50 Year
  Sex: Female

DRUGS (10)
  1. ESCITALOPRAM [Suspect]
     Indication: DEPRESSION
     Dosage: 20 MG (20 MG, 1 IN 1 D), ORAL
     Route: 048
     Dates: start: 20111019, end: 20111212
  2. ESCITALOPRAM [Suspect]
     Indication: ANXIETY DISORDER
     Dosage: 20 MG (20 MG, 1 IN 1 D), ORAL
     Route: 048
     Dates: start: 20111019, end: 20111212
  3. MIRZATEN (MIRTAZAPINE) (TABLETS) (MIRTAZAPINE) [Concomitant]
  4. HELEX (ALPRAZOLAM) (TABLETS) (ALPRAZOLAM) [Concomitant]
  5. ESCITALOPRAM [Suspect]
     Indication: DEPRESSION
     Dosage: 5 MG (5 MG, 1 IN 1 D), ORAL 10 MG (10 MG, 1 IN 1 D), ORAL
     Route: 048
     Dates: end: 20111018
  6. ESCITALOPRAM [Suspect]
     Indication: ANXIETY DISORDER
     Dosage: 5 MG (5 MG, 1 IN 1 D), ORAL 10 MG (10 MG, 1 IN 1 D), ORAL
     Route: 048
     Dates: end: 20111018
  7. ESCITALOPRAM [Suspect]
     Indication: DEPRESSION
     Dosage: 5 MG (5 MG, 1 IN 1 D), ORAL 10 MG (10 MG, 1 IN 1 D), ORAL
     Route: 048
     Dates: start: 20110928
  8. ESCITALOPRAM [Suspect]
     Indication: ANXIETY DISORDER
     Dosage: 5 MG (5 MG, 1 IN 1 D), ORAL 10 MG (10 MG, 1 IN 1 D), ORAL
     Route: 048
     Dates: start: 20110928
  9. ESCITALOPRAM [Suspect]
     Indication: DEPRESSION
     Dosage: 15 MG (15 MG, 1 IN 1 D), ORAL
     Route: 048
     Dates: start: 20111213
  10. ESCITALOPRAM [Suspect]
     Indication: ANXIETY DISORDER
     Dosage: 15 MG (15 MG, 1 IN 1 D), ORAL
     Route: 048
     Dates: start: 20111213

REACTIONS (13)
  - CARDIAC VENTRICULAR DISORDER [None]
  - CARDIAC DISORDER [None]
  - ATRIOVENTRICULAR BLOCK FIRST DEGREE [None]
  - PALPITATIONS [None]
  - DYSPNOEA [None]
  - NIGHTMARE [None]
  - ELECTROCARDIOGRAM QT PROLONGED [None]
  - CHEST DISCOMFORT [None]
  - APATHY [None]
  - ASTHENIA [None]
  - FATIGUE [None]
  - HEADACHE [None]
  - ELECTROCARDIOGRAM NORMAL [None]
